FAERS Safety Report 11334845 (Version 5)
Quarter: 2017Q1

REPORT INFORMATION
  Report Type: Spontaneous
  Country: BR (occurrence: BR)
  Receive Date: 20150804
  Receipt Date: 20170210
  Transmission Date: 20170428
  Serious: Yes (Other)
  Sender: FDA-Public Use
  Company Number: PHHY2015BR093336

PATIENT
  Sex: Male

DRUGS (3)
  1. TEGRETOL [Suspect]
     Active Substance: CARBAMAZEPINE
     Indication: PRODUCT USED FOR UNKNOWN INDICATION
     Dosage: 600 MG (400 MG + 200 MG), QHS
     Route: 065
     Dates: start: 201501
  2. TEGRETOL [Suspect]
     Active Substance: CARBAMAZEPINE
     Dosage: 200 MG, UNK
     Route: 065
     Dates: end: 201609
  3. TEGRETOL [Suspect]
     Active Substance: CARBAMAZEPINE
     Dosage: 400 MG, UNK
     Route: 065

REACTIONS (12)
  - Thrombosis [Unknown]
  - Syncope [Unknown]
  - Headache [Unknown]
  - Decreased appetite [Unknown]
  - Road traffic accident [Unknown]
  - Muscle spasms [Unknown]
  - Erythema [Unknown]
  - Dandruff [Unknown]
  - Skin exfoliation [Recovered/Resolved]
  - Pruritus [Unknown]
  - Dizziness [Unknown]
  - Memory impairment [Unknown]
